FAERS Safety Report 5782689-8 (Version None)
Quarter: 2008Q2

REPORT INFORMATION
  Report Type: 
  Country: None (occurrence: None)
  Receive Date: 20080624
  Receipt Date: 20080619
  Transmission Date: 20081010
  Serious: Yes (Disabling)
  Sender: FDA-Public Use
  Company Number: IE-WYE-G01687308

PATIENT
  Sex: Female
  Weight: 65 kg

DRUGS (2)
  1. VENLAFAXINE HYDROCHLORIDE [Suspect]
     Indication: DEPRESSION
     Route: 048
     Dates: start: 20070601
  2. VENLAFAXINE HYDROCHLORIDE [Suspect]
     Dosage: 117.5MG DAILY
     Route: 048
     Dates: start: 20080610

REACTIONS (2)
  - PNEUMONIA [None]
  - RESPIRATORY TRACT INFECTION [None]
